FAERS Safety Report 5355801-2 (Version None)
Quarter: 2007Q2

REPORT INFORMATION
  Report Type: 
  Country: None (occurrence: None)
  Receive Date: 20070613
  Receipt Date: 20070606
  Transmission Date: 20071010
  Serious: Yes (Hospitalization, Other)
  Sender: FDA-Public Use
  Company Number: JP-MERCK-0706USA01492

PATIENT
  Age: 84 Year
  Sex: Female

DRUGS (5)
  1. PEPCID [Suspect]
     Route: 048
  2. HALCION [Concomitant]
     Route: 048
  3. NORVASC [Concomitant]
     Route: 048
  4. VESICARE [Suspect]
     Route: 048
     Dates: end: 20070523
  5. LIPITOR [Suspect]
     Indication: HYPERLIPIDAEMIA
     Route: 048

REACTIONS (2)
  - PYREXIA [None]
  - URINARY RETENTION [None]
